FAERS Safety Report 21885705 (Version 1)
Quarter: 2023Q1

REPORT INFORMATION
  Report Type: Spontaneous
  Country: FR (occurrence: FR)
  Receive Date: 20230119
  Receipt Date: 20230119
  Transmission Date: 20230418
  Serious: Yes (Death, Other)
  Sender: FDA-Public Use
  Company Number: FR-BAXTER-2022BAX026222

PATIENT
  Age: 80 Year
  Sex: Male

DRUGS (3)
  1. BORTEZOMIB [Suspect]
     Active Substance: BORTEZOMIB
     Indication: Product used for unknown indication
     Dosage: 1 DOSE(S) /WEEK 4 WEEK(S)/CYCLE
     Route: 065
     Dates: end: 20191113
  2. DEXAMETHASONE [Suspect]
     Active Substance: DEXAMETHASONE
     Indication: Product used for unknown indication
     Dosage: 20MG/DOSE,1 DOSE(S) /WEEK4 WEEK(S)/CYCLE
     Route: 065
     Dates: end: 20191113
  3. CYCLOPHOSPHAMIDE [Suspect]
     Active Substance: CYCLOPHOSPHAMIDE
     Indication: Product used for unknown indication
     Dosage: 300MG/DOSE,1 DOSE(S)/WEEK 3WEEK(S)/CYCLE
     Route: 065
     Dates: end: 20191113

REACTIONS (2)
  - Respiratory failure [Fatal]
  - Respiratory distress [Fatal]

NARRATIVE: CASE EVENT DATE: 20191113
